FAERS Safety Report 6508922-2 (Version None)
Quarter: 2009Q4

REPORT INFORMATION
  Report Type: 
  Country: None (occurrence: None)
  Receive Date: 20091221
  Receipt Date: 20090917
  Transmission Date: 20100525
  Serious: No
  Sender: FDA-Public Use
  Company Number: US-ASTRAZENECA-2009SE14084

PATIENT
  Age: 62 Year
  Sex: Female
  Weight: 57.2 kg

DRUGS (9)
  1. CRESTOR [Suspect]
     Route: 048
     Dates: start: 20090816
  2. QUINAPRIL [Concomitant]
     Indication: HYPERTENSION
  3. HYDROCHLOROTHIAZIDE [Concomitant]
     Indication: HYPERTENSION
  4. SINGULAIR [Concomitant]
     Indication: HYPERSENSITIVITY
  5. PROVENTIL [Concomitant]
     Indication: DYSPNOEA
  6. ESTRACE [Concomitant]
  7. ASPIRIN [Concomitant]
  8. ZYRTEC [Concomitant]
     Indication: HYPERSENSITIVITY
  9. SUPPLEMENTS [Concomitant]

REACTIONS (1)
  - WEIGHT INCREASED [None]
